FAERS Safety Report 9184284 (Version 1)
Quarter: 2013Q1

REPORT INFORMATION
  Report Type: Spontaneous
  Country: US (occurrence: US)
  Receive Date: 20130322
  Receipt Date: 20130322
  Transmission Date: 20140127
  Serious: Yes (Other)
  Sender: FDA-Public Use
  Company Number: CHPA2013US004704

PATIENT
  Sex: 0

DRUGS (4)
  1. CONTROL PLP [Suspect]
     Indication: SMOKING CESSATION THERAPY
     Dosage: 14 MG, ONCE/SINGLE
     Route: 062
     Dates: start: 20130313, end: 20130313
  2. NICOTINE POLACRILEX [Suspect]
     Dosage: 1 DF, Q2H
     Dates: start: 20130313
  3. METFORMIN [Concomitant]
     Indication: DIABETES MELLITUS
     Dosage: 500 MG, QD
  4. OLMESARTAN [Concomitant]
     Indication: HYPERTENSION
     Dosage: 20 MG, QD

REACTIONS (6)
  - Depression [Not Recovered/Not Resolved]
  - Headache [Recovered/Resolved]
  - Somnolence [Not Recovered/Not Resolved]
  - Overdose [Unknown]
  - Treatment noncompliance [Unknown]
  - Underdose [Unknown]
